FAERS Safety Report 4515426-5 (Version None)
Quarter: 2004Q4

REPORT INFORMATION
  Report Type: 
  Country: None (occurrence: None)
  Receive Date: 20041126
  Receipt Date: 20041117
  Transmission Date: 20050328
  Serious: Yes (Death, Hospitalization)
  Sender: FDA-Public Use
  Company Number: 25370

PATIENT
  Age: 80 Year
  Sex: Female

DRUGS (13)
  1. ALDARA [Suspect]
     Indication: BASAL CELL CARCINOMA
     Dosage: (0.1 SACHET, 1 IN 1 DAY(S)) TOPICAL
     Route: 061
     Dates: start: 20040521, end: 20040922
  2. QUININE [Concomitant]
  3. TRAZODONE [Concomitant]
  4. DETROL [Concomitant]
  5. REMICADE [Concomitant]
  6. IMIPRAM TAB [Concomitant]
  7. PRILOSEC [Concomitant]
  8. STOOL SOFTENER [Concomitant]
  9. ZESTRIL [Concomitant]
  10. LOPRESSOR [Concomitant]
  11. FOLIC ACID [Concomitant]
  12. ASPIRIN [Concomitant]
  13. MULTI-VITAMINS [Concomitant]

REACTIONS (5)
  - BACTERAEMIA [None]
  - CEREBROVASCULAR ACCIDENT [None]
  - HEADACHE [None]
  - NAUSEA [None]
  - PYREXIA [None]
